FAERS Safety Report 25151231 (Version 2)
Quarter: 2025Q4

REPORT INFORMATION
  Report Type: Spontaneous
  Country: US (occurrence: US)
  Receive Date: 20250402
  Receipt Date: 20251023
  Transmission Date: 20260118
  Serious: No
  Sender: BRISTOL-MYERS SQUIBB COMPANY
  Company Number: US-BRISTOL-MYERS SQUIBB COMPANY-2025-049209

PATIENT
  Age: 73 Year
  Sex: Female

DRUGS (2)
  1. KRAZATI [Suspect]
     Active Substance: ADAGRASIB
     Indication: Product used for unknown indication
     Dosage: DOSE : 3 X 200MG TWICE DAILY;     FREQ : TWICE DAILY
  2. KRAZATI [Suspect]
     Active Substance: ADAGRASIB
     Dosage: TAKE 2 TABLETS BY MOUTH TWICE DAILY WITH OR WITHOUT FOOD

REACTIONS (2)
  - Product use issue [Unknown]
  - Treatment noncompliance [Unknown]
